FAERS Safety Report 9282971 (Version 2)
Quarter: 2013Q4

REPORT INFORMATION
  Report Type: Spontaneous
  Country: US (occurrence: US)
  Receive Date: 20130510
  Receipt Date: 20131223
  Transmission Date: 20140711
  Serious: Yes (Other)
  Sender: FDA-Public Use
  Company Number: US-BAYER-2013-058395

PATIENT
  Age: 27 Year
  Sex: Female
  Weight: 56.24 kg

DRUGS (3)
  1. YAZ [Suspect]
     Dosage: UNK
     Dates: start: 2010, end: 2011
  2. BEYAZ [Suspect]
     Dosage: UNK
     Route: 048
     Dates: start: 2010
  3. TRAMADOL [Concomitant]
     Indication: PAIN
     Dosage: 50-100 MG [EVERY] 8 [HOURS]
     Route: 048

REACTIONS (16)
  - Pelvic venous thrombosis [None]
  - Pulmonary embolism [None]
  - Pulmonary embolism [None]
  - Pain [None]
  - Injury [None]
  - General physical health deterioration [None]
  - Abdominal pain [None]
  - Emotional distress [None]
  - Anxiety [None]
  - Pain [None]
  - Chest pain [None]
  - Nausea [None]
  - Vomiting [None]
  - Gait disturbance [None]
  - Headache [None]
  - Abdominal discomfort [None]
